FAERS Safety Report 4829611-6 (Version None)
Quarter: 2005Q4

REPORT INFORMATION
  Report Type: 
  Country: None (occurrence: None)
  Receive Date: 20051027
  Receipt Date: 20041214
  Transmission Date: 20060501
  Serious: Yes (Hospitalization, Other)
  Sender: FDA-Public Use
  Company Number: 200410277US

PATIENT
  Age: 52 Year
  Sex: Female
  Weight: 81.8 kg

DRUGS (16)
  1. ARAVA [Suspect]
     Indication: PSORIATIC ARTHROPATHY
     Dosage: 100 MG QD
     Dates: start: 20030911
  2. ARAVA [Suspect]
     Indication: PSORIATIC ARTHROPATHY
     Dosage: 20 MG QD
     Dates: end: 20040105
  3. METHOTREXATE [Concomitant]
  4. SULFASALAZINE [Concomitant]
  5. PARACETAMOL, HYDROCODONE BITARTRATE (VICODIN) [Concomitant]
  6. RANITIDINE [Concomitant]
  7. CYCLOBENZAPRINE HCL [Concomitant]
  8. PARACETAMOL, OXYCODONE HYDROCHLORIDE (TYLOX) [Concomitant]
  9. DOXYCYCLINE [Concomitant]
  10. PROZAC [Concomitant]
  11. ESTRADIOL (VIVELLE) [Concomitant]
  12. FOLIC ACID [Concomitant]
  13. VITAMIN B COMPLEX CAP [Concomitant]
  14. CALCIUM GLUCONATE [Concomitant]
  15. MAGNESIUM [Concomitant]
  16. VITMIN B6 [Concomitant]

REACTIONS (9)
  - ALVEOLITIS [None]
  - ASTHENIA [None]
  - COUGH [None]
  - DRUG INEFFECTIVE [None]
  - DYSPNOEA [None]
  - HYPOXIA [None]
  - PNEUMONITIS [None]
  - TACHYPNOEA [None]
  - WHITE BLOOD CELL COUNT DECREASED [None]
